FAERS Safety Report 21756513 (Version 1)
Quarter: 2022Q4

REPORT INFORMATION
  Report Type: Report from Study
  Country: US (occurrence: None)
  Receive Date: 20221220
  Receipt Date: 20221220
  Transmission Date: 20230112
  Serious: Yes (Hospitalization)
  Sender: FDA-Public Use
  Company Number: 2022A401812

PATIENT
  Sex: Male

DRUGS (1)
  1. CALQUENCE [Suspect]
     Active Substance: ACALABRUTINIB
     Indication: Acute lymphocytic leukaemia
     Route: 048

REACTIONS (7)
  - Anxiety [Unknown]
  - Influenza [Unknown]
  - Pneumonia [Unknown]
  - Pericardial effusion [Unknown]
  - Atrial fibrillation [Unknown]
  - Abdominal pain upper [Unknown]
  - Product dose omission issue [Unknown]
